FAERS Safety Report 8019043-4 (Version None)
Quarter: 2012Q1

REPORT INFORMATION
  Report Type: 
  Country: None (occurrence: None)
  Receive Date: 20120103
  Receipt Date: 20111223
  Transmission Date: 20120608
  Serious: Yes (Other)
  Sender: FDA-Public Use
  Company Number: DE-ELI_LILLY_AND_COMPANY-DE201112007166

PATIENT
  Age: 13 Year
  Sex: Male

DRUGS (3)
  1. STRATTERA [Suspect]
     Indication: ATTENTION DEFICIT/HYPERACTIVITY DISORDER
     Dosage: 10 MG, UNKNOWN
     Route: 048
     Dates: start: 20111201
  2. STRATTERA [Suspect]
     Dosage: 18 MG, UNKNOWN
     Route: 048
  3. STRATTERA [Suspect]
     Dosage: 25 MG, UNKNOWN
     Route: 048
     Dates: end: 20111219

REACTIONS (2)
  - SUICIDAL IDEATION [None]
  - DEPRESSION [None]
